FAERS Safety Report 7984257-6 (Version None)
Quarter: 2011Q4

REPORT INFORMATION
  Report Type: 
  Country: None (occurrence: None)
  Receive Date: 20111216
  Receipt Date: 20111205
  Transmission Date: 20120403
  Serious: Yes (Other)
  Sender: FDA-Public Use
  Company Number: CA-JNJFOC-20111204632

PATIENT
  Sex: Male
  Weight: 93.2 kg

DRUGS (7)
  1. PREVACID [Concomitant]
     Route: 065
  2. REMICADE [Suspect]
     Indication: CROHN'S DISEASE
     Route: 042
     Dates: start: 20100419
  3. SYNTHROID [Concomitant]
     Route: 065
  4. CELESTAN [Concomitant]
     Route: 065
  5. CHOLESTEROL [Concomitant]
     Route: 065
  6. IMODIUM [Concomitant]
     Route: 065
  7. ATIVAN [Concomitant]
     Route: 065

REACTIONS (2)
  - PARAESTHESIA [None]
  - DEPRESSION [None]
